FAERS Safety Report 15789006 (Version 1)
Quarter: 2019Q1

REPORT INFORMATION
  Report Type: Spontaneous
  Country: US (occurrence: US)
  Receive Date: 20190104
  Receipt Date: 20190104
  Transmission Date: 20190417
  Serious: No
  Sender: FDA-Public Use
  Company Number: US-ASTRAZENECA-2018SF71199

PATIENT
  Sex: Female
  Weight: 52.2 kg

DRUGS (2)
  1. FASENRA [Suspect]
     Active Substance: BENRALIZUMAB
     Indication: ASTHMA
     Route: 058
     Dates: start: 20181226
  2. ALVESCO INHALER [Concomitant]
     Indication: ASTHMA
     Dosage: 160UG/INHAL TWO TIMES A DAY
     Route: 055
     Dates: start: 20181226

REACTIONS (3)
  - Pruritus [Unknown]
  - Urticaria [Unknown]
  - Erythema [Unknown]
